FAERS Safety Report 4711607-6 (Version None)
Quarter: 2005Q3

REPORT INFORMATION
  Report Type: 
  Country: None (occurrence: None)
  Receive Date: 20050708
  Receipt Date: 20050708
  Transmission Date: 20060218
  Serious: Yes (Life-Threatening, Hospitalization)
  Sender: FDA-Public Use
  Company Number: None

PATIENT
  Age: 16 Year
  Sex: Female
  Weight: 54.4316 kg

DRUGS (1)
  1. TEGRETOL [Suspect]
     Indication: BIPOLAR I DISORDER
     Dates: start: 19880301, end: 19880425

REACTIONS (2)
  - ADVERSE DRUG REACTION [None]
  - DRUG LEVEL INCREASED [None]
